FAERS Safety Report 13709649 (Version 1)
Quarter: 2017Q3

REPORT INFORMATION
  Report Type: Spontaneous
  Country: DK (occurrence: DK)
  Receive Date: 20170703
  Receipt Date: 20170703
  Transmission Date: 20171127
  Serious: Yes (Other)
  Sender: FDA-Public Use
  Company Number: DK-ACCORD-053210

PATIENT
  Sex: Female

DRUGS (1)
  1. LETROZOL ACCORD [Suspect]
     Active Substance: LETROZOLE
     Indication: ANTIOESTROGEN THERAPY
     Route: 048
     Dates: start: 20161004

REACTIONS (3)
  - Herpes zoster [Unknown]
  - Urinary tract infection [Unknown]
  - Trigger finger [Unknown]

NARRATIVE: CASE EVENT DATE: 201612
